FAERS Safety Report 5196613-2 (Version None)
Quarter: 2006Q4

REPORT INFORMATION
  Report Type: 
  Country: None (occurrence: None)
  Receive Date: 20061226
  Receipt Date: 20061218
  Transmission Date: 20070319
  Serious: Yes (Hospitalization)
  Sender: FDA-Public Use
  Company Number: 2006002360

PATIENT
  Age: 63 Year
  Sex: Male

DRUGS (1)
  1. TARCEVA [Suspect]
     Indication: LUNG NEOPLASM MALIGNANT
     Dosage: 150 MG (QD), ORAL
     Route: 048
     Dates: start: 20061017, end: 20061115

REACTIONS (5)
  - APHTHOUS STOMATITIS [None]
  - DERMATITIS ACNEIFORM [None]
  - METASTASES TO BONE [None]
  - POLYCYTHAEMIA [None]
  - SPINAL FRACTURE [None]
